FAERS Safety Report 5515729-1 (Version None)
Quarter: 2007Q4

REPORT INFORMATION
  Report Type: 
  Country: None (occurrence: None)
  Receive Date: 20071114
  Receipt Date: 20071108
  Transmission Date: 20080405
  Serious: Yes (Other)
  Sender: FDA-Public Use
  Company Number: PHNU2007DE02626

PATIENT
  Age: 34 Year
  Sex: Male

DRUGS (2)
  1. TEGRETAL RETARD [Suspect]
     Indication: DRUG WITHDRAWAL CONVULSIONS
     Dosage: 1-0-1 TABLET/DAY
     Route: 048
     Dates: end: 20070715
  2. TEGRETAL RETARD [Suspect]
     Dosage: 2-2-2 TABLETS/DAY
     Route: 048
     Dates: start: 20070715

REACTIONS (2)
  - CONVULSION [None]
  - DIZZINESS [None]
